FAERS Safety Report 19940532 (Version 1)
Quarter: 2021Q4

REPORT INFORMATION
  Report Type: Spontaneous
  Country: US (occurrence: US)
  Receive Date: 20211011
  Receipt Date: 20211011
  Transmission Date: 20220303
  Serious: No
  Sender: FDA-Public Use
  Company Number: US-PERRIGO-21US011934

PATIENT
  Age: 67 Year
  Sex: Male
  Weight: 62.13 kg

DRUGS (6)
  1. IMIQUIMOD [Suspect]
     Active Substance: IMIQUIMOD
     Indication: Anogenital warts
     Dosage: SMALL AMOUNT, ONCE
     Route: 061
     Dates: start: 20210820, end: 20210820
  2. IMIQUIMOD [Suspect]
     Active Substance: IMIQUIMOD
     Dosage: SMALL AMOUNT, ONCE
     Route: 061
     Dates: start: 20210823, end: 20210823
  3. OMEPRAZOLE [Concomitant]
     Active Substance: OMEPRAZOLE
     Indication: Hernia hiatus repair
     Dosage: UNK
     Route: 065
  4. DEXILANT [Concomitant]
     Active Substance: DEXLANSOPRAZOLE
     Indication: Hernia hiatus repair
     Dosage: UNK
     Route: 065
     Dates: start: 2016
  5. VALTREX [Concomitant]
     Active Substance: VALACYCLOVIR HYDROCHLORIDE
     Indication: Anogenital warts
     Dosage: 500 MG, UNKNOWN
     Route: 065
     Dates: start: 2019
  6. HUMAN IMMUNOGLOBULIN G [Concomitant]
     Active Substance: HUMAN IMMUNOGLOBULIN G
     Indication: Immune enhancement therapy
     Dosage: UNK, INFUSION APPROX EVERY 5 WEEKS
     Route: 065
     Dates: start: 2012

REACTIONS (3)
  - Pruritus [Recovering/Resolving]
  - Pain [Recovering/Resolving]
  - Drug ineffective [Unknown]

NARRATIVE: CASE EVENT DATE: 20210820
